FAERS Safety Report 9372275 (Version 2)
Quarter: 2013Q3

REPORT INFORMATION
  Report Type: Spontaneous
  Country: US (occurrence: None)
  Receive Date: 20130611
  Receipt Date: 20130708
  Transmission Date: 20140515
  Serious: Yes (Hospitalization)
  Sender: FDA-Public Use
  Company Number: 2011028875

PATIENT
  Sex: Female
  Weight: 40.82 kg

DRUGS (19)
  1. PRIVIGEN (IMMUNE GLOBULIN INTRAVENOUS (HUMAN) 10% LIQUID) [Suspect]
     Indication: NEUTROPHIL FUNCTION DISORDER
     Dates: start: 20110501
  2. PRIVIGEN (IMMUNE GLOBULIN INTRAVENOUS (HUMAN) 10% LIQUID) [Suspect]
     Indication: SELECTIVE POLYSACCHARIDE ANTIBODY DEFICIENCY
     Dates: start: 20110501
  3. HEPARIN (HEPARIN) [Concomitant]
  4. TRIAMCINOLONE (TRIAMCINOLONE) [Concomitant]
  5. FLUCONAZOLE (FLUCONAZOLE) [Concomitant]
  6. ALBUTEROL (SALBUTAMOL) [Concomitant]
  7. ZYRTEC (CETIRIZINE HYDROCHLORIDE) [Concomitant]
  8. BACTRIM (BACTRIM/00086101/) [Concomitant]
  9. PROAIR (PROCATEROL HYDROCHLORIDE) [Concomitant]
  10. TEEN MULTIVITAMIN (DAILY MULTIVITAMIN) [Concomitant]
  11. DIPHENHYDRAMINE (DIPHENHYDRAMINE) [Concomitant]
  12. SODIUM CHLORIDE [Concomitant]
  13. EPI-PEN (EPINEPHRINE) [Concomitant]
  14. HYDROCORTISONE CREAM (QUINODERM CREAM WITH HYDROCORTISONE) [Concomitant]
  15. PERMETHRIN CREAM (PERMETHRIN) [Concomitant]
  16. CLOTRIMAZOLE AF CRM (CLOTRIMAZOLE) [Concomitant]
  17. TUMS CLACIUM TAB (CALCIUM CARBONATE) [Concomitant]
  18. VITAMIN D (ERGOCALCIFEROL) [Concomitant]
  19. TYLENOL EX-STR (PARACETAMOL) [Concomitant]

REACTIONS (6)
  - Off label use [None]
  - Headache [None]
  - Nausea [None]
  - Infusion related reaction [None]
  - Oral infection [None]
  - Drug dose omission [None]
